FAERS Safety Report 13611692 (Version 1)
Quarter: 2017Q2

REPORT INFORMATION
  Report Type: Report from Study
  Country: JP (occurrence: JP)
  Receive Date: 20170605
  Receipt Date: 20170605
  Transmission Date: 20170830
  Serious: Yes (Other)
  Sender: FDA-Public Use
  Company Number: JP-ROCHE-1941443

PATIENT

DRUGS (2)
  1. RITUXIMAB [Suspect]
     Active Substance: RITUXIMAB
     Indication: B-CELL LYMPHOMA
     Dosage: INDUCTION COURSE: 8 WEEKLY DOSES OF RITUXIMAB.
     Route: 042
  2. RITUXIMAB [Suspect]
     Active Substance: RITUXIMAB
     Dosage: MAINTENANCE COURSES: 4 WEEKLY DOSES EVERY 6 MONTHS UP TO FOUR COURSES.
     Route: 042

REACTIONS (5)
  - Pyrexia [Unknown]
  - Infection [Unknown]
  - Alanine aminotransferase increased [Unknown]
  - Neutropenia [Unknown]
  - Arthritis [Unknown]
